FAERS Safety Report 4767288-9 (Version None)
Quarter: 2005Q3

REPORT INFORMATION
  Report Type: 
  Country: None (occurrence: None)
  Receive Date: 20050913
  Receipt Date: 20050909
  Transmission Date: 20060218
  Serious: Yes (Other)
  Sender: FDA-Public Use
  Company Number: US-GLAXOSMITHKLINE-A0573604A

PATIENT
  Age: 18 Year
  Sex: Female

DRUGS (6)
  1. LAMICTAL [Suspect]
     Indication: EPILEPSY
     Dosage: 300MG PER DAY
     Route: 048
     Dates: start: 20050301
  2. FLORINEF [Concomitant]
  3. ZOLOFT [Concomitant]
  4. KEFLEX [Concomitant]
  5. FOLIC ACID [Concomitant]
  6. UNKNOWN MEDICATION [Concomitant]

REACTIONS (6)
  - ABDOMINAL PAIN UPPER [None]
  - CONVULSION [None]
  - GAIT DISTURBANCE [None]
  - IRRITABILITY [None]
  - LOGORRHOEA [None]
  - SPEECH DISORDER [None]
